FAERS Safety Report 8025754-7 (Version None)
Quarter: 2012Q1

REPORT INFORMATION
  Report Type: 
  Country: None (occurrence: None)
  Receive Date: 20120105
  Receipt Date: 20110107
  Transmission Date: 20120608
  Serious: No
  Sender: FDA-Public Use
  Company Number: US-ABBOTT-11P-163-0696032-00

PATIENT
  Sex: Female
  Weight: 93.524 kg

DRUGS (12)
  1. SYNTHROID [Suspect]
     Indication: THYROIDECTOMY
     Dosage: 350 MCG DAILY DOSE
  2. SYNTHROID [Suspect]
     Indication: THYROIDECTOMY
     Dates: start: 20090601
  3. NEXIUM [Concomitant]
     Indication: GASTROOESOPHAGEAL REFLUX DISEASE
  4. RECLAST [Concomitant]
     Indication: BONE DISORDER
     Dates: start: 20090101
  5. SYNTHROID [Suspect]
  6. RESTASIS [Concomitant]
     Indication: DRY EYE
  7. EVOXAC [Concomitant]
     Indication: DRY MOUTH
  8. RITUXAN [Concomitant]
     Indication: POLYMYOSITIS
     Dates: start: 20100101
  9. PLAQUENIL [Concomitant]
     Indication: ARTHRITIS
     Dosage: 400 MG DAILY DOSE
  10. PREDNISONE TAB [Concomitant]
     Indication: CONNECTIVE TISSUE DISORDER
     Dosage: 30 MG DAILY DOSE
  11. RITUXAN [Concomitant]
  12. LISINOPRIL [Concomitant]
     Indication: HYPERTENSION

REACTIONS (2)
  - BLOOD THYROID STIMULATING HORMONE DECREASED [None]
  - DRUG INEFFECTIVE [None]
